FAERS Safety Report 4884353-6 (Version None)
Quarter: 2006Q1

REPORT INFORMATION
  Report Type: 
  Country: None (occurrence: None)
  Receive Date: 20060117
  Receipt Date: 20060117
  Transmission Date: 20060701
  Serious: Yes (Hospitalization)
  Sender: FDA-Public Use
  Company Number: None

PATIENT
  Age: 56 Year
  Sex: Male
  Weight: 83.2 kg

DRUGS (2)
  1. MORPHINE [Suspect]
     Indication: ARTHRALGIA
     Dosage: 15MG TID PO
     Route: 048
     Dates: start: 20051222, end: 20051228
  2. MORPHINE [Suspect]
     Dosage: 10MG QD PRN PO
     Route: 048

REACTIONS (9)
  - ACCIDENTAL OVERDOSE [None]
  - ASTHENIA [None]
  - CHEST PAIN [None]
  - DRUG EFFECT DECREASED [None]
  - GASTROOESOPHAGEAL REFLUX DISEASE [None]
  - HYPOAESTHESIA [None]
  - MEDICATION ERROR [None]
  - PAIN IN EXTREMITY [None]
  - SOMNOLENCE [None]
